FAERS Safety Report 16285194 (Version 1)
Quarter: 2019Q2

REPORT INFORMATION
  Report Type: Spontaneous
  Country: FR (occurrence: FR)
  Receive Date: 20190508
  Receipt Date: 20190508
  Transmission Date: 20190711
  Serious: Yes (Hospitalization)
  Sender: FDA-Public Use
  Company Number: FR-ROCHE-2249412

PATIENT
  Age: 39 Year
  Sex: Female
  Weight: 48 kg

DRUGS (7)
  1. FLUCONAZOLE. [Suspect]
     Active Substance: FLUCONAZOLE
     Indication: ORAL FUNGAL INFECTION
     Route: 048
     Dates: start: 20181215, end: 20181219
  2. ZELBORAF [Suspect]
     Active Substance: VEMURAFENIB
     Indication: METASTATIC MALIGNANT MELANOMA
     Route: 048
     Dates: start: 20181206, end: 20181218
  3. TRANXENE [Suspect]
     Active Substance: CLORAZEPATE DIPOTASSIUM
     Indication: ANXIETY
     Route: 048
     Dates: start: 20181206
  4. COTELLIC [Suspect]
     Active Substance: COBIMETINIB
     Indication: METASTATIC MALIGNANT MELANOMA
     Route: 048
     Dates: start: 20181206, end: 20181218
  5. XGEVA [Suspect]
     Active Substance: DENOSUMAB
     Indication: METASTASES TO BONE
     Route: 058
     Dates: start: 20181213, end: 20181213
  6. TERCIAN [CYAMEMAZINE] [Suspect]
     Active Substance: CYAMEMAZINE
     Indication: ANXIETY
     Dosage: UNIT DOSE: 10 [DRP]
     Route: 048
     Dates: start: 20181207
  7. PANTOPRAZOLE MYLAN [Suspect]
     Active Substance: PANTOPRAZOLE SODIUM
     Indication: PROPHYLAXIS AGAINST GASTROINTESTINAL ULCER
     Route: 048
     Dates: start: 20181207

REACTIONS (2)
  - Rash maculo-papular [Recovered/Resolved]
  - Eosinophilia [Recovered/Resolved]

NARRATIVE: CASE EVENT DATE: 20181216
